FAERS Safety Report 8780742 (Version 1)
Quarter: 2012Q4

REPORT INFORMATION
  Report Type: Report from Study
  Country: US (occurrence: US)
  Receive Date: 20120913
  Receipt Date: 20120913
  Transmission Date: 20130627
  Serious: No
  Sender: FDA-Public Use
  Company Number: US-VERTEX PHARMACEUTICAL INC.-AE-2012-008284

PATIENT

DRUGS (5)
  1. INCIVEK [Suspect]
     Indication: HEPATITIS C
     Route: 048
  2. RIBAVIRIN [Concomitant]
     Indication: HEPATITIS C
     Route: 058
  3. PEGASYS [Concomitant]
     Indication: HEPATITIS C
     Route: 058
  4. SINGULAIR [Concomitant]
  5. PRILOSEC [Concomitant]

REACTIONS (3)
  - Pyrexia [Unknown]
  - Depressed mood [Unknown]
  - Nausea [Unknown]
